FAERS Safety Report 5968926-5 (Version None)
Quarter: 2008Q4

REPORT INFORMATION
  Report Type: 
  Country: None (occurrence: None)
  Receive Date: 20081126
  Receipt Date: 20081117
  Transmission Date: 20090506
  Serious: Yes (Hospitalization)
  Sender: FDA-Public Use
  Company Number: US-AMGEN-US319990

PATIENT
  Sex: Male
  Weight: 59.5 kg

DRUGS (6)
  1. NEULASTA [Suspect]
     Indication: CHEMOTHERAPY
     Route: 058
     Dates: start: 20030508, end: 20030731
  2. CYCLOPHOSPHAMIDE [Concomitant]
     Dates: start: 20030507, end: 20030730
  3. NOVANTRONE [Concomitant]
     Dates: start: 20030507, end: 20030730
  4. VINCRISTINE [Concomitant]
     Dates: start: 20030507, end: 20030730
  5. RITUXIMAB [Concomitant]
     Dates: start: 20040213, end: 20040304
  6. PREDNISONE TAB [Concomitant]
     Dates: start: 20030507, end: 20030803

REACTIONS (1)
  - CEREBROVASCULAR ACCIDENT [None]
